FAERS Safety Report 7176940-X (Version None)
Quarter: 2010Q4

REPORT INFORMATION
  Report Type: 
  Country: None (occurrence: None)
  Receive Date: 20101216
  Receipt Date: 20101216
  Transmission Date: 20110411
  Serious: No
  Sender: FDA-Public Use
  Company Number: None

PATIENT
  Sex: Female
  Weight: 61.2356 kg

DRUGS (2)
  1. PROPRANOLOL [Suspect]
     Indication: AGGRESSION
     Dosage: 2 TABS 3X/DAY ORAL
     Route: 048
     Dates: start: 20091203
  2. PROPRANOLOL [Suspect]
     Indication: BRAIN INJURY
     Dosage: 2 TABS 3X/DAY ORAL
     Route: 048
     Dates: start: 20091203

REACTIONS (3)
  - AGGRESSION [None]
  - HEART RATE DECREASED [None]
  - PRODUCT SUBSTITUTION ISSUE [None]
